FAERS Safety Report 9539649 (Version 1)
Quarter: 2013Q3

REPORT INFORMATION
  Report Type: Spontaneous
  Country: IE (occurrence: IE)
  Receive Date: 20130920
  Receipt Date: 20130920
  Transmission Date: 20140515
  Serious: Yes (Other)
  Sender: FDA-Public Use
  Company Number: PHHY2013IE103852

PATIENT
  Age: 78 Year
  Sex: Female

DRUGS (2)
  1. SANDOSTATIN LAR [Suspect]
  2. CABERGOLINE [Concomitant]

REACTIONS (3)
  - Raynaud^s phenomenon [Unknown]
  - Insulin-like growth factor increased [Unknown]
  - Glucose tolerance impaired [Unknown]
